FAERS Safety Report 5134680-2 (Version None)
Quarter: 2006Q4

REPORT INFORMATION
  Report Type: 
  Country: None (occurrence: None)
  Receive Date: 20061025
  Receipt Date: 20001110
  Transmission Date: 20070319
  Serious: Yes (Other)
  Sender: FDA-Public Use
  Company Number: US-GLAXOSMITHKLINE-A0544559A

PATIENT
  Age: 55 Year
  Sex: Female
  Weight: 106.7 kg

DRUGS (9)
  1. TOSITUMOMAB [Suspect]
     Indication: NON-HODGKIN'S LYMPHOMA
     Route: 042
     Dates: start: 19980311, end: 19980311
  2. IODINE I 131 TOSITUMOMAB [Suspect]
     Indication: NON-HODGKIN'S LYMPHOMA
     Route: 042
     Dates: start: 19980311, end: 19980311
  3. TOSITUMOMAB [Suspect]
     Route: 042
     Dates: start: 19980320, end: 19980320
  4. IODINE I 131 TOSITUMOMAB [Suspect]
     Route: 042
     Dates: start: 19980320, end: 19980320
  5. TOSITUMOMAB [Suspect]
     Route: 042
     Dates: start: 19991028, end: 19991028
  6. IODINE I 131 TOSITUMOMAB [Suspect]
     Route: 042
     Dates: start: 19991028, end: 19991028
  7. TOSITUMOMAB [Suspect]
     Route: 042
     Dates: start: 19991105, end: 19991105
  8. IODINE I 131 TOSITUMOMAB [Suspect]
     Route: 042
     Dates: start: 19991105, end: 19991105
  9. SSKI [Concomitant]

REACTIONS (2)
  - DYSPNOEA [None]
  - URTICARIA [None]
